FAERS Safety Report 8510489-4 (Version None)
Quarter: 2012Q3

REPORT INFORMATION
  Report Type: 
  Country: None (occurrence: None)
  Receive Date: 20120716
  Receipt Date: 20120709
  Transmission Date: 20120928
  Serious: Yes (Other)
  Sender: FDA-Public Use
  Company Number: DE-AMGEN-DEUSP2012042718

PATIENT
  Sex: Male

DRUGS (1)
  1. XGEVA [Suspect]
     Indication: TRANSITIONAL CELL CARCINOMA
     Dosage: 120 MG, Q4WK
     Dates: start: 20111001

REACTIONS (2)
  - EXTRAOCULAR MUSCLE DISORDER [None]
  - DIPLOPIA [None]
